FAERS Safety Report 8169190-1 (Version None)
Quarter: 2012Q1

REPORT INFORMATION
  Report Type: 
  Country: None (occurrence: None)
  Receive Date: 20120227
  Receipt Date: 20120222
  Transmission Date: 20120608
  Serious: Yes (Life-Threatening)
  Sender: FDA-Public Use
  Company Number: CA-ASTRAZENECA-2012SE11401

PATIENT
  Age: 31 Year
  Sex: Male

DRUGS (1)
  1. SEROQUEL [Suspect]
     Dosage: FORA A MONTH
     Route: 048
     Dates: start: 20100301

REACTIONS (10)
  - NIGHTMARE [None]
  - DRUG DOSE OMISSION [None]
  - SCHIZOPHRENIA, PARANOID TYPE [None]
  - HALLUCINATION, VISUAL [None]
  - POST-TRAUMATIC STRESS DISORDER [None]
  - HALLUCINATION, AUDITORY [None]
  - MENTAL DISORDER [None]
  - DISEASE RECURRENCE [None]
  - PHYSICAL ASSAULT [None]
  - DELUSIONAL PERCEPTION [None]
